FAERS Safety Report 23185828 (Version 1)
Quarter: 2023Q4

REPORT INFORMATION
  Report Type: Spontaneous
  Country: US (occurrence: US)
  Receive Date: 20231115
  Receipt Date: 20231115
  Transmission Date: 20240110
  Serious: No
  Sender: FDA-Public Use
  Company Number: US-OTSUKA-2023_005641

PATIENT
  Sex: Female

DRUGS (1)
  1. NUEDEXTA [Suspect]
     Active Substance: DEXTROMETHORPHAN HYDROBROMIDE\QUINIDINE SULFATE
     Indication: Craniocerebral injury
     Dosage: UNK
     Route: 065
     Dates: start: 2013

REACTIONS (4)
  - Disturbance in attention [Unknown]
  - Inability to afford medication [Unknown]
  - Therapy interrupted [Unknown]
  - Product use in unapproved indication [Unknown]
